FAERS Safety Report 23314834 (Version 1)
Quarter: 2023Q4

REPORT INFORMATION
  Report Type: Spontaneous
  Country: DE (occurrence: None)
  Receive Date: 20231219
  Receipt Date: 20231219
  Transmission Date: 20240109
  Serious: Yes (Other)
  Sender: FDA-Public Use
  Company Number: 2023A280889

PATIENT
  Age: 71 Year
  Sex: Male

DRUGS (1)
  1. BUDESONIDE\FORMOTEROL\GLYCOPYRRONIUM [Suspect]
     Active Substance: BUDESONIDE\FORMOTEROL\GLYCOPYRRONIUM
     Dosage: 5.0UG UNKNOWN
     Route: 055

REACTIONS (4)
  - Seizure [Unknown]
  - Aphonia [Unknown]
  - Dyspnoea [Unknown]
  - Sleep disorder [Unknown]
